FAERS Safety Report 20775007 (Version 1)
Quarter: 2022Q2

REPORT INFORMATION
  Report Type: Spontaneous
  Country: US (occurrence: US)
  Receive Date: 20220502
  Receipt Date: 20220502
  Transmission Date: 20220721
  Serious: Yes (Other)
  Sender: FDA-Public Use
  Company Number: US-SA-SAC20220429001471

PATIENT
  Age: 55 Year
  Sex: Female

DRUGS (1)
  1. ZANTAC [Suspect]
     Active Substance: RANITIDINE HYDROCHLORIDE
     Indication: Dyspepsia
     Dosage: UNK, DOSE: OTHER
     Dates: start: 200901, end: 201501

REACTIONS (5)
  - Barrett^s oesophagus [Unknown]
  - Disease progression [Unknown]
  - Malignant palate neoplasm [Unknown]
  - Gastrooesophageal reflux disease [Unknown]
  - Neoplasm malignant [Unknown]

NARRATIVE: CASE EVENT DATE: 20160101
